FAERS Safety Report 15575294 (Version 4)
Quarter: 2018Q4

REPORT INFORMATION
  Report Type: Spontaneous
  Country: CA (occurrence: CA)
  Receive Date: 20181101
  Receipt Date: 20181206
  Transmission Date: 20190205
  Serious: Yes (Other)
  Sender: FDA-Public Use
  Company Number: CA-PFIZER INC-2016190824

PATIENT
  Age: 59 Year
  Sex: Female

DRUGS (10)
  1. PREDNISONE. [Suspect]
     Active Substance: PREDNISONE
     Dosage: UNK
     Route: 065
  2. ORENCIA [Concomitant]
     Active Substance: ABATACEPT
     Dosage: UNK
     Route: 042
     Dates: start: 2015, end: 2016
  3. HYDROXYCHLOROQUINE SULPHATE [Suspect]
     Active Substance: HYDROXYCHLOROQUINE
     Dosage: UNK
     Route: 065
  4. METHOTREXATE SODIUM. [Suspect]
     Active Substance: METHOTREXATE SODIUM
     Indication: RHEUMATOID ARTHRITIS
     Dosage: 20 MG, QWK
     Route: 048
  5. APO-PREDNISONE [Suspect]
     Active Substance: PREDNISONE
     Dosage: UNK
     Route: 065
  6. ARAVA [Suspect]
     Active Substance: LEFLUNOMIDE
     Dosage: UNK
     Route: 065
  7. ENBREL [Suspect]
     Active Substance: ETANERCEPT
     Indication: RHEUMATOID ARTHRITIS
     Dosage: UNK
     Route: 065
     Dates: start: 2014, end: 2015
  8. HUMIRA [Suspect]
     Active Substance: ADALIMUMAB
     Indication: RHEUMATOID ARTHRITIS
     Dosage: UNK
     Route: 058
     Dates: start: 2009, end: 2014
  9. HUMIRA [Suspect]
     Active Substance: ADALIMUMAB
     Dosage: UNK
  10. HYDROXYCHLOROQUINE [Suspect]
     Active Substance: HYDROXYCHLOROQUINE
     Dosage: 400 MG, QD
     Route: 065
     Dates: start: 2000

REACTIONS (18)
  - Drug intolerance [Unknown]
  - Gait disturbance [Unknown]
  - Hepatic enzyme increased [Unknown]
  - Abdominal discomfort [Unknown]
  - Vomiting [Unknown]
  - Dyspepsia [Unknown]
  - Drug ineffective [Unknown]
  - Pain in extremity [Unknown]
  - Migraine [Unknown]
  - Arthropathy [Unknown]
  - X-ray abnormal [Unknown]
  - Mobility decreased [Unknown]
  - Contraindicated product administered [Unknown]
  - Joint swelling [Unknown]
  - Nausea [Unknown]
  - Rheumatoid factor positive [Unknown]
  - Synovitis [Unknown]
  - Arthralgia [Unknown]
